FAERS Safety Report 21856934 (Version 1)
Quarter: 2023Q1

REPORT INFORMATION
  Report Type: Spontaneous
  Country: US (occurrence: US)
  Receive Date: 20230113
  Receipt Date: 20230113
  Transmission Date: 20230418
  Serious: Yes (Other)
  Sender: FDA-Public Use
  Company Number: US-Vifor (International) Inc.-VIT-2023-00169

PATIENT
  Age: 26 Year
  Sex: Male
  Weight: 87.4 kg

DRUGS (1)
  1. MIRCERA [Suspect]
     Active Substance: METHOXY POLYETHYLENE GLYCOL-EPOETIN BETA
     Indication: Nephrogenic anaemia
     Route: 040
     Dates: start: 20221212, end: 20221219

REACTIONS (5)
  - Drug hypersensitivity [Recovered/Resolved]
  - Malaise [Recovered/Resolved]
  - Flushing [Recovered/Resolved]
  - Loss of consciousness [Recovered/Resolved]
  - Off label use [Unknown]

NARRATIVE: CASE EVENT DATE: 20221219
